FAERS Safety Report 20790031 (Version 6)
Quarter: 2023Q1

REPORT INFORMATION
  Report Type: Report from Study
  Country: KR (occurrence: KR)
  Receive Date: 20220505
  Receipt Date: 20230303
  Transmission Date: 20230417
  Serious: Yes (Death, Hospitalization, Other)
  Sender: FDA-Public Use
  Company Number: KR-OTSUKA-2022_025398

PATIENT
  Age: 61 Year
  Sex: Male

DRUGS (12)
  1. PONATINIB [Suspect]
     Active Substance: PONATINIB
     Indication: Philadelphia positive acute lymphocytic leukaemia
     Dosage: 45 MILLIGRAM, QD
     Route: 048
     Dates: start: 20211230, end: 20220306
  2. CALCIUM CARBONATE\CHOLECALCIFEROL [Concomitant]
     Active Substance: CALCIUM CARBONATE\CHOLECALCIFEROL
     Indication: Diabetes mellitus
     Dosage: UNK UNK, QD
     Route: 048
     Dates: start: 20211204, end: 20220304
  3. LINAGLIPTIN [Concomitant]
     Active Substance: LINAGLIPTIN
     Indication: Diabetes mellitus
     Dosage: 5 MILLIGRAM, QD
     Route: 048
     Dates: start: 20211202, end: 20220202
  4. LINAGLIPTIN [Concomitant]
     Active Substance: LINAGLIPTIN
     Dosage: 2.5 MILLIGRAM, QD
     Route: 048
     Dates: start: 20220203, end: 20220314
  5. NORVASC [Concomitant]
     Active Substance: AMLODIPINE BESYLATE
     Indication: Hypertension
     Dosage: 5 MILLIGRAM, QD
     Route: 048
     Dates: start: 20200922
  6. EXJADE [Concomitant]
     Active Substance: DEFERASIROX
     Indication: Chelation therapy
     Dosage: 180 MILLIGRAM, QD
     Route: 048
     Dates: start: 20211204, end: 20220304
  7. Zoylex [Concomitant]
     Indication: Fungal infection
     Dosage: 400 MILLIGRAM, QD
     Route: 048
     Dates: start: 20211204
  8. Zoylex [Concomitant]
     Indication: Prophylaxis
     Dosage: UNK
     Route: 065
  9. MAXPIME [Concomitant]
     Indication: Pyrexia
     Dosage: 2 GRAM, TID
     Route: 042
     Dates: start: 20220307, end: 20220310
  10. NEOMEDICOUGH [Concomitant]
     Indication: Cough
     Dosage: UNK UNK, TID
     Route: 048
     Dates: start: 20220307, end: 20220314
  11. BISOPROLOL FUMARATE [Concomitant]
     Active Substance: BISOPROLOL FUMARATE
     Indication: Dyslipidaemia
     Dosage: 5 MILLIGRAM, QD
     Route: 048
     Dates: start: 20220203, end: 20220306
  12. BISOPROLOL FUMARATE [Concomitant]
     Active Substance: BISOPROLOL FUMARATE
     Indication: Prophylaxis
     Dosage: 160 MILLIGRAM
     Route: 065

REACTIONS (3)
  - Leukaemic lymphoma [Fatal]
  - Stomatitis [Recovered/Resolved]
  - Headache [Recovered/Resolved]

NARRATIVE: CASE EVENT DATE: 20220121
